FAERS Safety Report 24825695 (Version 2)
Quarter: 2025Q1

REPORT INFORMATION
  Report Type: Report from Study
  Country: CA (occurrence: CA)
  Receive Date: 20250109
  Receipt Date: 20250116
  Transmission Date: 20250409
  Serious: Yes (Other)
  Sender: ABBVIE
  Company Number: CA-ABBVIE-6076005

PATIENT
  Sex: Male

DRUGS (1)
  1. SKYRIZI [Suspect]
     Active Substance: RISANKIZUMAB-RZAA
     Indication: Crohn^s disease
     Route: 058
     Dates: start: 20231101

REACTIONS (6)
  - Intestinal anastomosis [Unknown]
  - Frequent bowel movements [Not Recovered/Not Resolved]
  - Pouchitis [Unknown]
  - Haematochezia [Not Recovered/Not Resolved]
  - Serum ferritin abnormal [Unknown]
  - Haemoglobin abnormal [Unknown]
